FAERS Safety Report 13210854 (Version 1)
Quarter: 2017Q1

REPORT INFORMATION
  Report Type: Spontaneous
  Country: US (occurrence: US)
  Receive Date: 20170209
  Receipt Date: 20170209
  Transmission Date: 20170428
  Serious: Yes (Other)
  Sender: FDA-Public Use
  Company Number: US-MAYNE PHARMA-2017MYN000158

PATIENT
  Age: 46 Year
  Sex: Male

DRUGS (4)
  1. DIVALPROEX [Interacting]
     Active Substance: DIVALPROEX SODIUM
  2. LITHIUM. [Interacting]
     Active Substance: LITHIUM
  3. RISPERIDONE. [Concomitant]
     Active Substance: RISPERIDONE
  4. CLOZAPINE. [Suspect]
     Active Substance: CLOZAPINE
     Indication: PRODUCT USED FOR UNKNOWN INDICATION
     Dosage: 150 MG, QD

REACTIONS (1)
  - Drug interaction [Unknown]
